FAERS Safety Report 18522803 (Version 1)
Quarter: 2020Q4

REPORT INFORMATION
  Report Type: Spontaneous
  Country: NL (occurrence: NL)
  Receive Date: 20201119
  Receipt Date: 20201119
  Transmission Date: 20210114
  Serious: Yes (Hospitalization, Other)
  Sender: FDA-Public Use
  Company Number: NL-GLAXOSMITHKLINE-NL2020GSK223348

PATIENT
  Age: 71 Year
  Sex: Female
  Weight: 95 kg

DRUGS (17)
  1. SODIUM CHLORIDE INFUSION [Concomitant]
     Indication: BLOOD SODIUM DECREASED
     Dosage: 1 L
  2. HYDROCORTISONE. [Concomitant]
     Active Substance: HYDROCORTISONE
     Indication: STEROID THERAPY
     Dosage: UNK
  3. DEHYDROEPIANDROSTERONE [Concomitant]
     Active Substance: PRASTERONE
     Indication: STEROID THERAPY
     Dosage: UNK
  4. COLECALCIFEROL [Concomitant]
     Active Substance: CHOLECALCIFEROL
     Indication: PRODUCT USED FOR UNKNOWN INDICATION
     Dosage: UNK
  5. OXYCODONE [Concomitant]
     Active Substance: OXYCODONE
     Indication: PRODUCT USED FOR UNKNOWN INDICATION
     Dosage: UNK
  6. FLUDROCORTISONE [Concomitant]
     Active Substance: FLUDROCORTISONE
     Indication: STEROID THERAPY
     Dosage: UNK
  7. OLODATEROL + TIOTROPIUM [Concomitant]
     Active Substance: OLODATEROL HYDROCHLORIDE\TIOTROPIUM BROMIDE MONOHYDRATE
     Indication: CHRONIC OBSTRUCTIVE PULMONARY DISEASE
     Dosage: UNK
     Route: 055
  8. HYPROMELLOSE EYE DROPS [Concomitant]
     Indication: PRODUCT USED FOR UNKNOWN INDICATION
     Dosage: UNK
  9. VALACYCLOVIR [Suspect]
     Active Substance: VALACYCLOVIR HYDROCHLORIDE
     Indication: ANTIVIRAL TREATMENT
     Dosage: 500 MG, Z Q8H
     Route: 048
  10. LORAZEPAM. [Suspect]
     Active Substance: LORAZEPAM
     Indication: HALLUCINATIONS, MIXED
     Dosage: 0.5 MG, QD
     Route: 048
  11. CALCIUM CARBONATE. [Concomitant]
     Active Substance: CALCIUM CARBONATE
     Indication: PRODUCT USED FOR UNKNOWN INDICATION
     Dosage: UNK
  12. HALOPERIDOL. [Suspect]
     Active Substance: HALOPERIDOL
     Indication: HALLUCINATIONS, MIXED
     Dosage: 1 MG, BID
     Route: 048
  13. ACYCLOVIR. [Suspect]
     Active Substance: ACYCLOVIR
     Indication: HERPES ZOSTER MENINGOENCEPHALITIS
     Dosage: 10 MG/KG, Z (950?MG, Q8H BASED ON ABW)
     Route: 042
  14. ACYCLOVIR. [Concomitant]
     Active Substance: ACYCLOVIR
     Indication: OPHTHALMIC HERPES ZOSTER
     Dosage: UNK
     Route: 050
  15. LATANOPROST + TIMOLOL [Concomitant]
     Indication: PRODUCT USED FOR UNKNOWN INDICATION
     Dosage: UNK
  16. SODIUM CHLORIDE INFUSION [Concomitant]
     Dosage: 1.5 UNK
  17. ACETYLSALICYLIC ACID [Concomitant]
     Active Substance: ASPIRIN
     Indication: PRODUCT USED FOR UNKNOWN INDICATION
     Dosage: LOW DOSE

REACTIONS (11)
  - Blood creatinine increased [Recovered/Resolved]
  - Glomerular filtration rate decreased [Recovered/Resolved]
  - Nephropathy toxic [Recovered/Resolved]
  - Drug ineffective [Unknown]
  - Drug level above therapeutic [Unknown]
  - Toxicity to various agents [Unknown]
  - Neurotoxicity [Recovered/Resolved]
  - Urine output decreased [Recovered/Resolved]
  - Hallucinations, mixed [Recovered/Resolved]
  - Neurological symptom [Recovered/Resolved]
  - Anuria [Recovered/Resolved]
